FAERS Safety Report 6156533-3 (Version None)
Quarter: 2009Q2

REPORT INFORMATION
  Report Type: 
  Country: None (occurrence: None)
  Receive Date: 20090416
  Receipt Date: 20090403
  Transmission Date: 20091009
  Serious: Yes (Hospitalization, Disabling, Other)
  Sender: FDA-Public Use
  Company Number: US-ROCHE-384508

PATIENT
  Sex: Male
  Weight: 68.5 kg

DRUGS (8)
  1. ACCUTANE [Suspect]
     Indication: ACNE
     Route: 048
     Dates: start: 20011113, end: 20011214
  2. ACCUTANE [Suspect]
     Route: 048
     Dates: start: 20011214, end: 20020101
  3. ACCUTANE [Suspect]
     Dosage: STRENGTH AND FORMULATION FOR THIS DOSE REGIMEN WAS REPORTED AS 40 MG.
     Route: 048
     Dates: start: 20020403
  4. MINOCYCLINE HCL [Concomitant]
     Indication: ACNE
     Route: 048
     Dates: start: 20011113
  5. DECADRON [Concomitant]
     Indication: ACNE
     Route: 048
     Dates: start: 20011113
  6. LIPITOR [Concomitant]
     Route: 048
     Dates: start: 20020111
  7. PREDNISONE [Concomitant]
     Route: 048
     Dates: start: 20011216
  8. MONODOX [Concomitant]
     Route: 048
     Dates: start: 20020123

REACTIONS (15)
  - ABDOMINAL DISCOMFORT [None]
  - ABSCESS [None]
  - ACNE [None]
  - BLOOD TRIGLYCERIDES INCREASED [None]
  - COLITIS [None]
  - COLITIS ULCERATIVE [None]
  - EOSINOPHILIA [None]
  - FATIGUE [None]
  - GASTROINTESTINAL DISORDER [None]
  - INFLAMMATORY BOWEL DISEASE [None]
  - INTESTINAL HAEMORRHAGE [None]
  - IRON DEFICIENCY ANAEMIA [None]
  - PROCTITIS [None]
  - RECTAL HAEMORRHAGE [None]
  - SCAR [None]
